FAERS Safety Report 22208514 (Version 1)
Quarter: 2023Q2

REPORT INFORMATION
  Report Type: Spontaneous
  Country: US (occurrence: None)
  Receive Date: 20230413
  Receipt Date: 20230413
  Transmission Date: 20230722
  Serious: Yes (Other)
  Sender: FDA-Public Use
  Company Number: None

PATIENT
  Age: 73 Year
  Sex: Male
  Weight: 78.93 kg

DRUGS (1)
  1. ERLEADA [Suspect]
     Active Substance: APALUTAMIDE
     Indication: Prostate cancer
     Dosage: FREQUENCY : 4 TIMES A DAY;?
     Route: 048
     Dates: start: 20230131, end: 20230309

REACTIONS (7)
  - Rash pruritic [None]
  - Rash erythematous [None]
  - Rash papular [None]
  - Drug eruption [None]
  - Swelling [None]
  - Chills [None]
  - Skin exfoliation [None]

NARRATIVE: CASE EVENT DATE: 20200505
